FAERS Safety Report 7809294-3 (Version None)
Quarter: 2011Q4

REPORT INFORMATION
  Report Type: 
  Country: None (occurrence: None)
  Receive Date: 20111006
  Receipt Date: 20110118
  Transmission Date: 20120403
  Serious: Yes (Death, Hospitalization)
  Sender: FDA-Public Use
  Company Number: 2011SP045117

PATIENT
  Age: 76 Year
  Sex: Female

DRUGS (11)
  1. ASPIRIN [Concomitant]
  2. ASPIRIN [Suspect]
     Indication: COAGULOPATHY
     Dates: start: 20100412, end: 20100415
  3. INTEGRILIN [Suspect]
     Indication: COAGULOPATHY
     Dates: start: 20100412, end: 20100415
  4. PLAVIX [Suspect]
     Indication: COAGULOPATHY
     Dates: start: 20100412, end: 20100415
  5. MOTRIN [Concomitant]
  6. MOTRIN [Concomitant]
  7. LOVASTATIN [Concomitant]
  8. MORPHINE [Concomitant]
  9. HYDROCODONE BITARTRATE [Concomitant]
  10. ATENOLOL [Concomitant]
  11. VITAMIN D [Concomitant]

REACTIONS (2)
  - ACUTE MYOCARDIAL INFARCTION [None]
  - CEREBRAL HAEMORRHAGE [None]
